FAERS Safety Report 13047142 (Version 10)
Quarter: 2017Q2

REPORT INFORMATION
  Report Type: Report from Study
  Country: BR (occurrence: BR)
  Receive Date: 20161220
  Receipt Date: 20170412
  Transmission Date: 20170830
  Serious: Yes (Hospitalization, Disabling, Other)
  Sender: FDA-Public Use
  Company Number: BR-ALEXION-A201609960

PATIENT
  Age: 30 Year
  Sex: Female
  Weight: 41 kg

DRUGS (3)
  1. SOLIRIS [Suspect]
     Active Substance: ECULIZUMAB
     Dosage: 1200 MG, Q2W
     Route: 042
     Dates: start: 20160729
  2. SOLIRIS [Suspect]
     Active Substance: ECULIZUMAB
     Indication: HAEMOLYTIC URAEMIC SYNDROME
     Dosage: 900 MG, UNK
     Route: 065
     Dates: start: 20160107
  3. SOLIRIS [Suspect]
     Active Substance: ECULIZUMAB
     Dosage: 900 MG, FOR 4 WEEKS
     Route: 042
     Dates: start: 20160701, end: 20160722

REACTIONS (19)
  - Fungal infection [Recovering/Resolving]
  - Hypotension [Recovered/Resolved]
  - Arthralgia [Recovering/Resolving]
  - Mobility decreased [Unknown]
  - Weight gain poor [Recovering/Resolving]
  - Weight decreased [Not Recovered/Not Resolved]
  - Immune system disorder [Recovering/Resolving]
  - Intervertebral discitis [Unknown]
  - Pneumonia [Recovering/Resolving]
  - Urinary tract infection [Recovering/Resolving]
  - Nerve injury [Unknown]
  - Inappropriate schedule of drug administration [Recovered/Resolved]
  - Inflammation [Recovering/Resolving]
  - Thrombotic microangiopathy [Unknown]
  - Pain [Recovering/Resolving]
  - Pyrexia [Recovering/Resolving]
  - Blood lactate dehydrogenase increased [Unknown]
  - Thrombocytopenia [Unknown]
  - Back pain [Recovering/Resolving]

NARRATIVE: CASE EVENT DATE: 201609
